FAERS Safety Report 21842231 (Version 8)
Quarter: 2023Q2

REPORT INFORMATION
  Report Type: Report from Study
  Country: US (occurrence: US)
  Receive Date: 20230110
  Receipt Date: 20230606
  Transmission Date: 20230722
  Serious: Yes (Hospitalization, Other)
  Sender: FDA-Public Use
  Company Number: US-002147023-NVSC2023US004682

PATIENT
  Age: 68 Year
  Sex: Male
  Weight: 96.16 kg

DRUGS (14)
  1. METOPROLOL [Suspect]
     Active Substance: METOPROLOL
     Indication: Atrial fibrillation
     Dosage: UNK UNK, BID
     Route: 048
     Dates: start: 20220311
  2. METOPROLOL [Suspect]
     Active Substance: METOPROLOL
     Indication: Ventricular tachycardia
  3. ENTRESTO [Suspect]
     Active Substance: SACUBITRIL\VALSARTAN
     Indication: Cardiac failure congestive
     Dosage: UNK, BID
     Route: 048
     Dates: start: 20221228
  4. ENTRESTO [Suspect]
     Active Substance: SACUBITRIL\VALSARTAN
     Dosage: 50 MG, BID (24/26 MG)
     Route: 048
     Dates: start: 20230103, end: 20230501
  5. AMIODARONE [Suspect]
     Active Substance: AMIODARONE
     Indication: Product used for unknown indication
     Dosage: UNK, BID, (STARTED ABOUT ONE MONTH AGO), (FOR 2 WEEKS)
     Route: 065
  6. AMIODARONE [Suspect]
     Active Substance: AMIODARONE
     Dosage: UNK, QD (FOR 90 DAYS)
     Route: 065
  7. XARELTO [Suspect]
     Active Substance: RIVAROXABAN
     Indication: Atrial fibrillation
     Dosage: UNK
     Route: 065
     Dates: start: 202203
  8. XARELTO [Suspect]
     Active Substance: RIVAROXABAN
     Dosage: UNK, QD
     Route: 048
     Dates: start: 20220311
  9. JARDIANCE [Concomitant]
     Active Substance: EMPAGLIFLOZIN
     Indication: Cardiac failure congestive
     Dosage: UNK, (ABOUT 4 MONTHS AGO)
     Route: 065
  10. JARDIANCE [Concomitant]
     Active Substance: EMPAGLIFLOZIN
     Dosage: UNK, QD
     Route: 048
     Dates: start: 20220712
  11. JARDIANCE [Concomitant]
     Active Substance: EMPAGLIFLOZIN
     Dosage: UNK (14 DAYS)
     Route: 065
     Dates: start: 202208
  12. SPIRONOLACTONE [Concomitant]
     Active Substance: SPIRONOLACTONE
     Indication: Cardiac failure congestive
     Dosage: UNK, QD, (STARTED 15 MAR)
     Route: 048
  13. ALLOPURINOL [Concomitant]
     Active Substance: ALLOPURINOL
     Indication: Product used for unknown indication
     Dosage: UNK
     Route: 065
  14. LOSARTAN [Concomitant]
     Active Substance: LOSARTAN
     Indication: Product used for unknown indication
     Dosage: UNK
     Route: 065

REACTIONS (10)
  - Pneumonia [Recovered/Resolved]
  - Pneumothorax [Recovered/Resolved]
  - Skin discolouration [Unknown]
  - Muscular weakness [Unknown]
  - Weight decreased [Recovering/Resolving]
  - Rhinorrhoea [Unknown]
  - Cough [Unknown]
  - Sneezing [Unknown]
  - Tooth injury [Unknown]
  - Product use in unapproved indication [Unknown]

NARRATIVE: CASE EVENT DATE: 20220903
